FAERS Safety Report 15575728 (Version 2)
Quarter: 2019Q1

REPORT INFORMATION
  Report Type: Spontaneous
  Country: PL (occurrence: PL)
  Receive Date: 20181101
  Receipt Date: 20190102
  Transmission Date: 20190417
  Serious: Yes (Hospitalization, Other)
  Sender: FDA-Public Use
  Company Number: PL-MYLANLABS-2018M1081609

PATIENT
  Age: 24 Year
  Sex: Male

DRUGS (3)
  1. MORPHINE [Suspect]
     Active Substance: MORPHINE
     Indication: PRODUCT USED FOR UNKNOWN INDICATION
     Dosage: UNK
     Route: 065
  2. DEXTROMETHORPHAN [Suspect]
     Active Substance: DEXTROMETHORPHAN
     Indication: PRODUCT USED FOR UNKNOWN INDICATION
     Dosage: 60 DOSAGE FORM, TOTAL
     Route: 065
  3. ACODIN [Suspect]
     Active Substance: DEXTROMETHORPHAN HYDROBROMIDE
     Indication: UNEVALUABLE EVENT
     Dosage: 60 DOSAGE FORM, TOTAL

REACTIONS (22)
  - Respiratory disorder [Recovering/Resolving]
  - Quadriplegia [Recovering/Resolving]
  - Miosis [Recovering/Resolving]
  - Electrolyte imbalance [Recovering/Resolving]
  - General physical health deterioration [Unknown]
  - Neurodegenerative disorder [Unknown]
  - Secretion discharge [Recovering/Resolving]
  - Intentional overdose [Unknown]
  - Transaminases increased [Unknown]
  - Electrocardiogram QRS complex prolonged [Unknown]
  - Drug abuse [Unknown]
  - Foaming at mouth [Unknown]
  - Renal impairment [Recovered/Resolved]
  - Trismus [Unknown]
  - Pneumonia [Unknown]
  - Blood potassium increased [Unknown]
  - Rhabdomyolysis [Recovering/Resolving]
  - Atrial fibrillation [Unknown]
  - Toxicity to various agents [Unknown]
  - Hypotension [Recovering/Resolving]
  - Loss of consciousness [Recovering/Resolving]
  - Unresponsive to stimuli [Recovering/Resolving]
